FAERS Safety Report 7594243-6 (Version None)
Quarter: 2011Q3

REPORT INFORMATION
  Report Type: 
  Country: None (occurrence: None)
  Receive Date: 20110706
  Receipt Date: 20110706
  Transmission Date: 20111222
  Serious: Yes (Other)
  Sender: FDA-Public Use
  Company Number: None

PATIENT
  Age: 30 Year
  Sex: Male
  Weight: 108.86 kg

DRUGS (1)
  1. LAMICTAL [Suspect]
     Indication: BIPOLAR I DISORDER
     Dosage: 300MG A DAY
     Route: 048
     Dates: start: 20100310, end: 20110704

REACTIONS (5)
  - NIGHTMARE [None]
  - SCREAMING [None]
  - ABNORMAL SLEEP-RELATED EVENT [None]
  - PALPITATIONS [None]
  - HYPERHIDROSIS [None]
